FAERS Safety Report 24281419 (Version 1)
Quarter: 2024Q3

REPORT INFORMATION
  Report Type: Spontaneous
  Country: US (occurrence: US)
  Receive Date: 20240904
  Receipt Date: 20240904
  Transmission Date: 20241016
  Serious: Yes (Death, Hospitalization)
  Sender: PFIZER
  Company Number: US-PFIZER INC-202400247663

PATIENT
  Age: 84 Year
  Sex: Male
  Weight: 101.6 kg

DRUGS (3)
  1. VYNDAMAX [Suspect]
     Active Substance: TAFAMIDIS
     Indication: Cardiac amyloidosis
     Dosage: 61 MG
     Dates: start: 20210517
  2. VYNDAMAX [Suspect]
     Active Substance: TAFAMIDIS
     Indication: Prostate cancer
  3. ERLEADA [Concomitant]
     Active Substance: APALUTAMIDE
     Indication: Prostate cancer
     Dosage: 240MG, 4 TABLETS DAILY, TOTAL 960MG

REACTIONS (2)
  - Cardiac failure congestive [Fatal]
  - Dilated cardiomyopathy [Fatal]
